FAERS Safety Report 4767253-1 (Version None)
Quarter: 2005Q3

REPORT INFORMATION
  Report Type: 
  Country: None (occurrence: None)
  Receive Date: 20050913
  Receipt Date: 20050808
  Transmission Date: 20060218
  Serious: Yes (Hospitalization, Other)
  Sender: FDA-Public Use
  Company Number: PHBS2005JP11598

PATIENT
  Age: 58 Year
  Sex: Male

DRUGS (2)
  1. DIOVAN [Suspect]
     Indication: HYPERTENSION
     Dosage: UNK, UNK
     Route: 048
     Dates: start: 20050101
  2. NORVASC [Concomitant]
     Dosage: UNK, UNK
     Route: 048

REACTIONS (7)
  - BLOOD CREATINE INCREASED [None]
  - GLOMERULONEPHRITIS ACUTE [None]
  - NEPHROTIC SYNDROME [None]
  - OEDEMA PERIPHERAL [None]
  - PROTEINURIA [None]
  - THROMBOCYTOPENIA [None]
  - WEIGHT INCREASED [None]
